FAERS Safety Report 6654130-4 (Version None)
Quarter: 2010Q1

REPORT INFORMATION
  Report Type: 
  Country: None (occurrence: None)
  Receive Date: 20100326
  Receipt Date: 20100316
  Transmission Date: 20100710
  Serious: Yes (Other)
  Sender: FDA-Public Use
  Company Number: BR-PFIZER INC-2010033777

PATIENT
  Age: 55 Year
  Sex: Female

DRUGS (2)
  1. REVATIO [Suspect]
     Indication: PULMONARY HYPERTENSION
     Dosage: 20 MG, UNK
     Route: 048
     Dates: start: 20100224
  2. SILDENAFIL CITRATE [Suspect]
     Indication: PULMONARY HYPERTENSION
     Dosage: 25 MG, 3X/DAY
     Dates: end: 20100101

REACTIONS (3)
  - QUADRIPARESIS [None]
  - RESPIRATORY FAILURE [None]
  - TACHYCARDIA [None]
